FAERS Safety Report 17451167 (Version 1)
Quarter: 2020Q1

REPORT INFORMATION
  Report Type: Spontaneous
  Country: FR (occurrence: FR)
  Receive Date: 20200224
  Receipt Date: 20200224
  Transmission Date: 20200409
  Serious: Yes (Other)
  Sender: FDA-Public Use
  Company Number: FR-PFIZER INC-2020074970

PATIENT
  Age: 52 Year
  Sex: Female

DRUGS (2)
  1. TRAMADOL. [Suspect]
     Active Substance: TRAMADOL
     Dosage: UNK
     Route: 048
  2. XANAX [Suspect]
     Active Substance: ALPRAZOLAM
     Dosage: 0.75 MG, DAILY (3 TABLETS OF 0.25 MG EVERY NIGHT)
     Route: 048

REACTIONS (3)
  - Suicide attempt [Unknown]
  - Disease recurrence [Unknown]
  - Drug dependence [Not Recovered/Not Resolved]
